FAERS Safety Report 5193154-3 (Version None)
Quarter: 2006Q4

REPORT INFORMATION
  Report Type: 
  Country: None (occurrence: None)
  Receive Date: 20061228
  Receipt Date: 20060605
  Transmission Date: 20070319
  Serious: No
  Sender: FDA-Public Use
  Company Number: US-GLAXOSMITHKLINE-A0607932A

PATIENT
  Age: 41 Year
  Sex: Male

DRUGS (2)
  1. AVODART [Suspect]
     Indication: DRUG USE FOR UNKNOWN INDICATION
     Dosage: .5MG PER DAY
     Route: 065
     Dates: start: 20060602, end: 20060602
  2. TEGRETOL [Concomitant]

REACTIONS (3)
  - ACCIDENTAL EXPOSURE [None]
  - ERYTHEMA [None]
  - SKIN EXFOLIATION [None]
